FAERS Safety Report 7332535-6 (Version None)
Quarter: 2011Q1

REPORT INFORMATION
  Report Type: 
  Country: None (occurrence: None)
  Receive Date: 20110304
  Receipt Date: 20110228
  Transmission Date: 20110831
  Serious: Yes (Other)
  Sender: FDA-Public Use
  Company Number: JP-ROCHE-763247

PATIENT
  Age: 32 Year
  Sex: Female

DRUGS (1)
  1. ACTEMRA [Suspect]
     Indication: MUSCULOSKELETAL PAIN
     Dosage: DOSAGE IS UNCERTAIN
     Route: 041
     Dates: start: 20110223

REACTIONS (1)
  - HYPOAESTHESIA [None]
